FAERS Safety Report 26153790 (Version 1)
Quarter: 2025Q4

REPORT INFORMATION
  Report Type: Report from Study
  Country: MX (occurrence: MX)
  Receive Date: 20251214
  Receipt Date: 20251214
  Transmission Date: 20260117
  Serious: Yes (Other)
  Sender: UNITED THERAPEUTICS
  Company Number: MX-UNITED THERAPEUTICS-UNT-2025-042213

PATIENT
  Age: 52 Year
  Sex: Female
  Weight: 66 kg

DRUGS (2)
  1. TREPROSTINIL SODIUM [Suspect]
     Active Substance: TREPROSTINIL SODIUM
     Indication: Pulmonary arterial hypertension
     Dosage: UNK [1.50 U/H], CONTINUING
  2. TREPROSTINIL SODIUM [Suspect]
     Active Substance: TREPROSTINIL SODIUM
     Dosage: UNK, CONTINUING

REACTIONS (3)
  - Syncope [Not Recovered/Not Resolved]
  - Nausea [Not Recovered/Not Resolved]
  - Vision blurred [Not Recovered/Not Resolved]
